FAERS Safety Report 10063235 (Version 1)
Quarter: 2014Q2

REPORT INFORMATION
  Report Type: Spontaneous
  Country: DK (occurrence: CA)
  Receive Date: 20140407
  Receipt Date: 20140407
  Transmission Date: 20141212
  Serious: Yes (Other)
  Sender: FDA-Public Use
  Company Number: CA-FRI-1000066178

PATIENT
  Age: 57 Year
  Sex: Male

DRUGS (5)
  1. ESCITALOPRAM [Suspect]
     Dosage: 10 MG
     Route: 048
  2. ESCITALOPRAM [Suspect]
     Dosage: 20 MG
     Route: 048
  3. ESCITALOPRAM [Suspect]
     Dosage: OVERDOSE: ESCITALOPRAM 40 MG ONCE
     Route: 048
     Dates: start: 20140308, end: 20140308
  4. BLOOD PRESSURE PILLS NOS [Concomitant]
     Indication: BLOOD PRESSURE
     Dosage: DAILY DOSE NOT REPORTED
  5. PROSTATE CANCER MEDICATION NOS [Concomitant]
     Indication: PROSTATE CANCER
     Dosage: DAILY DOSE NOT REPORTED

REACTIONS (7)
  - Binge drinking [Unknown]
  - Feeling abnormal [Unknown]
  - Aggression [Unknown]
  - Legal problem [Unknown]
  - Insomnia [Unknown]
  - Anger [Unknown]
  - Accidental overdose [Unknown]
